FAERS Safety Report 4806984-1 (Version None)
Quarter: 2005Q4

REPORT INFORMATION
  Report Type: 
  Country: None (occurrence: None)
  Receive Date: 20051024
  Receipt Date: 20050701
  Transmission Date: 20060501
  Serious: Yes (Hospitalization)
  Sender: FDA-Public Use
  Company Number: DE-ABBOTT-05P-062-0304768-00

PATIENT
  Sex: Female

DRUGS (6)
  1. HUMIRA 40 MG/ 0.8 ML PRE-FILLED SYRINGE [Suspect]
     Indication: RHEUMATOID ARTHRITIS
     Route: 058
     Dates: start: 20050301
  2. HUMIRA 40 MG/ 0.8 ML PRE-FILLED SYRINGE [Suspect]
     Route: 058
     Dates: start: 20040601
  3. METHOTREXATE SODIUM [Concomitant]
     Indication: RHEUMATOID ARTHRITIS
     Route: 058
     Dates: start: 20050201
  4. ANALGETICS [Concomitant]
     Indication: DRUG USE FOR UNKNOWN INDICATION
  5. GLUCOCORTICOIDS [Concomitant]
     Indication: DRUG USE FOR UNKNOWN INDICATION
     Route: 048
     Dates: end: 20050630
  6. GLUCOCORTICOIDS [Concomitant]
     Route: 048
     Dates: start: 20050630

REACTIONS (4)
  - ARTHRALGIA [None]
  - FOOT OPERATION [None]
  - JOINT SWELLING [None]
  - MUSCULOSKELETAL STIFFNESS [None]
